FAERS Safety Report 4951820-6 (Version None)
Quarter: 2006Q1

REPORT INFORMATION
  Report Type: 
  Country: None (occurrence: None)
  Receive Date: 20060323
  Receipt Date: 20051117
  Transmission Date: 20060701
  Serious: Yes (Hospitalization, Disabling)
  Sender: FDA-Public Use
  Company Number: US-MERCK-0511USA03402

PATIENT
  Age: 37 Year
  Sex: Female
  Weight: 66 kg

DRUGS (4)
  1. VIOXX [Suspect]
     Indication: SHOULDER PAIN
     Route: 048
     Dates: start: 20030401, end: 20030101
  2. VIOXX [Suspect]
     Indication: NERVE COMPRESSION
     Route: 048
     Dates: start: 20030401, end: 20030101
  3. MOTRIN [Concomitant]
     Indication: SHOULDER PAIN
     Route: 065
  4. MOTRIN [Concomitant]
     Indication: NERVE COMPRESSION
     Route: 065

REACTIONS (1)
  - CEREBROVASCULAR ACCIDENT [None]
